FAERS Safety Report 7542809-1 (Version None)
Quarter: 2011Q2

REPORT INFORMATION
  Report Type: 
  Country: None (occurrence: None)
  Receive Date: 20110606
  Receipt Date: 20110520
  Transmission Date: 20111010
  Serious: Yes (Hospitalization)
  Sender: FDA-Public Use
  Company Number: GER/USA/11/0018464

PATIENT
  Age: 25 Year
  Sex: Female

DRUGS (2)
  1. NAPROXEN [Suspect]
     Indication: PERICARDIAL EFFUSION
  2. COLCHICINE [Concomitant]

REACTIONS (6)
  - ARTERIOSPASM CORONARY [None]
  - CARDIOGENIC SHOCK [None]
  - KOUNIS SYNDROME [None]
  - BLOOD PRESSURE SYSTOLIC DECREASED [None]
  - ANALGESIC ASTHMA SYNDROME [None]
  - CARDIAC FAILURE [None]
